FAERS Safety Report 5696545-7 (Version None)
Quarter: 2008Q2

REPORT INFORMATION
  Report Type: 
  Country: None (occurrence: None)
  Receive Date: 20080404
  Receipt Date: 20080404
  Transmission Date: 20081010
  Serious: Yes (Death)
  Sender: FDA-Public Use
  Company Number: None

PATIENT
  Sex: Male
  Weight: 73.9 kg

DRUGS (1)
  1. TRICIRIBINE PHOSPHATE [Suspect]
     Indication: ACUTE MYELOID LEUKAEMIA
     Dosage: 55 MG/M2  WEEKLY X 3 WEEKS  IV
     Route: 042
     Dates: start: 20071217, end: 20080218

REACTIONS (1)
  - DISEASE PROGRESSION [None]
